FAERS Safety Report 10102952 (Version 1)
Quarter: 2014Q2

REPORT INFORMATION
  Report Type: Spontaneous
  Country: US (occurrence: US)
  Receive Date: 20140424
  Receipt Date: 20140424
  Transmission Date: 20141212
  Serious: No
  Sender: FDA-Public Use
  Company Number: US-BRISTOL-MYERS SQUIBB COMPANY-19987270

PATIENT
  Age: 73 Year
  Sex: Male
  Weight: 113.38 kg

DRUGS (3)
  1. ELIQUIS [Suspect]
     Indication: THROMBOSIS
  2. PROMETHAZINE [Concomitant]
  3. OXYCODONE [Concomitant]
     Dosage: 1 DF: 10/650 UNITS NOS.

REACTIONS (4)
  - Asthenia [Unknown]
  - Arthralgia [Unknown]
  - Dysphonia [Unknown]
  - Pain [Unknown]
